FAERS Safety Report 18050167 (Version 1)
Quarter: 2020Q3

REPORT INFORMATION
  Report Type: Spontaneous
  Country: MM (occurrence: MM)
  Receive Date: 20200721
  Receipt Date: 20200721
  Transmission Date: 20201103
  Serious: Yes (Other)
  Sender: FDA-Public Use
  Company Number: MM-ROCHE-2643589

PATIENT
  Age: 58 Year
  Sex: Female
  Weight: 54 kg

DRUGS (1)
  1. HERCEPTIN [Suspect]
     Active Substance: TRASTUZUMAB
     Indication: BREAST CANCER STAGE IV
     Dosage: 150 MG AND 440 MG VIALS?340 MG OF 440 MG
     Route: 042
     Dates: start: 20200325

REACTIONS (3)
  - Medication error [Unknown]
  - Vasculitic ulcer [Recovered/Resolved]
  - Weight decreased [Unknown]
